FAERS Safety Report 13219680 (Version 1)
Quarter: 2017Q1

REPORT INFORMATION
  Report Type: Spontaneous
  Country: GB (occurrence: GB)
  Receive Date: 20170210
  Receipt Date: 20170210
  Transmission Date: 20170428
  Serious: Yes (Hospitalization, Other)
  Sender: FDA-Public Use
  Company Number: GB-DRREDDYS-GER/UKI/17/0087050

PATIENT
  Age: 57 Year
  Sex: Female

DRUGS (9)
  1. CLOZARIL [Interacting]
     Active Substance: CLOZAPINE
     Indication: SCHIZOPHRENIA
     Route: 048
     Dates: start: 19950109
  2. RIFAMPICIN [Interacting]
     Active Substance: RIFAMPIN
     Indication: TUBERCULOSIS OF CENTRAL NERVOUS SYSTEM
     Dosage: DOSAGE FORM: UNSPECIFIED
     Route: 065
  3. CLOZARIL [Interacting]
     Active Substance: CLOZAPINE
     Route: 048
     Dates: start: 201603
  4. RISPERIDONE. [Suspect]
     Active Substance: RISPERIDONE
     Indication: SCHIZOPHRENIA
     Dates: start: 201607
  5. CLOZARIL [Interacting]
     Active Substance: CLOZAPINE
     Route: 048
     Dates: start: 20010701
  6. ISONIAZID. [Interacting]
     Active Substance: ISONIAZID
     Indication: TUBERCULOSIS OF CENTRAL NERVOUS SYSTEM
     Dosage: DOSAGE FORM: UNSPECIFIED
     Route: 065
     Dates: start: 201607
  7. RIFABUTIN. [Interacting]
     Active Substance: RIFABUTIN
     Indication: TUBERCULOSIS OF CENTRAL NERVOUS SYSTEM
     Dosage: DOSAGE FORM: UNSPECIFIED
     Route: 065
     Dates: start: 201607
  8. PROCYCLIDINE [Interacting]
     Active Substance: PROCYCLIDINE
     Indication: TUBERCULOSIS OF CENTRAL NERVOUS SYSTEM
     Dosage: DOSAGE FORM: UNSPECIFIED
     Route: 065
     Dates: start: 201607
  9. LOFEPRAMINE [Interacting]
     Active Substance: LOFEPRAMINE
     Indication: TUBERCULOSIS OF CENTRAL NERVOUS SYSTEM
     Dosage: DOSAGE FORM: UNSPECIFIED
     Route: 065
     Dates: start: 201607

REACTIONS (4)
  - Tuberculosis of central nervous system [Unknown]
  - White blood cell count decreased [Recovering/Resolving]
  - Antipsychotic drug level above therapeutic [Unknown]
  - Labelled drug-drug interaction medication error [Unknown]

NARRATIVE: CASE EVENT DATE: 20161019
